FAERS Safety Report 25970615 (Version 1)
Quarter: 2025Q4

REPORT INFORMATION
  Report Type: Spontaneous
  Country: US (occurrence: US)
  Receive Date: 20251028
  Receipt Date: 20251028
  Transmission Date: 20260118
  Serious: No
  Sender: NOVO NORDISK
  Company Number: US-NOVOPROD-1290264

PATIENT
  Age: 11 Year
  Sex: Male

DRUGS (2)
  1. SOGROYA [Suspect]
     Active Substance: SOMAPACITAN-BECO
     Indication: Growth hormone deficiency
  2. SOGROYA [Suspect]
     Active Substance: SOMAPACITAN-BECO
     Indication: Craniopharyngioma
     Dosage: 10 MG, BIW
     Route: 058
     Dates: start: 20240912

REACTIONS (1)
  - Fat tissue decreased [Not Recovered/Not Resolved]
